FAERS Safety Report 7913479-5 (Version None)
Quarter: 2011Q4

REPORT INFORMATION
  Report Type: 
  Country: None (occurrence: None)
  Receive Date: 20111110
  Receipt Date: 20111026
  Transmission Date: 20120403
  Serious: Yes (Life-Threatening)
  Sender: FDA-Public Use
  Company Number: 2011AP001699

PATIENT
  Age: 43 Year
  Sex: Female

DRUGS (9)
  1. LANSOPRAZOLE [Concomitant]
  2. CONTRACEPTIVES  (CONTRACEPTIVES) [Concomitant]
  3. CETIRIZINE [Concomitant]
  4. SULFASALAZINE [Concomitant]
  5. ETODOLAC [Concomitant]
  6. LEFLUNOMIDE [Concomitant]
  7. LEFLUNOMIDE [Suspect]
     Indication: PSORIATIC ARTHROPATHY
     Dosage: 10 MG; QD; PO
     Route: 048
     Dates: start: 20031113
  8. HARPAGOPHYTUM PROCUMBENS (HARPAGOPHYTUM PROCUMBENS) [Concomitant]
  9. METHOTREXATE [Concomitant]

REACTIONS (3)
  - METASTASES TO LYMPH NODES [None]
  - BREAST MASS [None]
  - BREAST CANCER [None]
